FAERS Safety Report 10635756 (Version 1)
Quarter: 2014Q4

REPORT INFORMATION
  Report Type: Spontaneous
  Country: US (occurrence: US)
  Receive Date: 20141205
  Receipt Date: 20141205
  Transmission Date: 20150529
  Serious: No
  Sender: FDA-Public Use
  Company Number: US-EISAI MEDICAL RESEARCH-E2020-13430-SPO-US

PATIENT
  Sex: Female

DRUGS (5)
  1. ARICEPT [Suspect]
     Active Substance: DONEPEZIL HYDROCHLORIDE
     Route: 048
     Dates: end: 2013
  2. ARICEPT [Suspect]
     Active Substance: DONEPEZIL HYDROCHLORIDE
     Route: 048
     Dates: start: 2013, end: 2013
  3. ARICEPT [Suspect]
     Active Substance: DONEPEZIL HYDROCHLORIDE
     Indication: DEMENTIA ALZHEIMER^S TYPE
     Route: 048
     Dates: start: 2008
  4. PLAVIX [Concomitant]
     Active Substance: CLOPIDOGREL BISULFATE
     Indication: CEREBROVASCULAR ACCIDENT PROPHYLAXIS
     Dosage: UNKNOWN
     Route: 048
  5. PROCARDIA [Concomitant]
     Active Substance: NIFEDIPINE
     Indication: CEREBROVASCULAR ACCIDENT
     Dosage: UNKNOWN
     Route: 048

REACTIONS (1)
  - Nightmare [Recovered/Resolved]

NARRATIVE: CASE EVENT DATE: 2013
